FAERS Safety Report 8073176-5 (Version None)
Quarter: 2012Q1

REPORT INFORMATION
  Report Type: 
  Country: None (occurrence: None)
  Receive Date: 20120126
  Receipt Date: 20120118
  Transmission Date: 20120608
  Serious: Yes (Hospitalization)
  Sender: FDA-Public Use
  Company Number: FR-BAXTER-2012BH001897

PATIENT
  Age: 9 Year
  Sex: Female
  Weight: 26 kg

DRUGS (3)
  1. METHOTREXATE [Suspect]
     Indication: BONE SARCOMA
     Route: 042
     Dates: start: 20110423, end: 20111115
  2. IFOSFAMIDE [Suspect]
     Indication: BONE SARCOMA
     Route: 042
     Dates: start: 20110517, end: 20111013
  3. ETOPOSIDE [Suspect]
     Indication: BONE SARCOMA
     Route: 065
     Dates: start: 20110517, end: 20111013

REACTIONS (2)
  - LEUKOENCEPHALOPATHY [None]
  - FALL [None]
